FAERS Safety Report 4654124-4 (Version None)
Quarter: 2005Q2

REPORT INFORMATION
  Report Type: 
  Country: None (occurrence: None)
  Receive Date: 20050505
  Receipt Date: 20050216
  Transmission Date: 20051028
  Serious: Yes (Hospitalization)
  Sender: FDA-Public Use
  Company Number: US-MERCK-0502USA02340

PATIENT
  Age: 80 Year
  Sex: Female
  Weight: 68 kg

DRUGS (7)
  1. VIOXX [Suspect]
     Indication: OSTEOARTHRITIS
     Route: 048
     Dates: start: 19990101
  2. VIOXX [Suspect]
     Route: 048
     Dates: start: 19990101
  3. VIOXX [Suspect]
     Route: 048
     Dates: end: 20010101
  4. LOTREL [Concomitant]
     Route: 065
  5. TOPROL-XL [Concomitant]
     Indication: HYPERTENSION
     Route: 065
     Dates: start: 20010401
  6. LASIX [Concomitant]
     Indication: HYPERTENSION
     Route: 065
     Dates: start: 19900101
  7. ATIVAN [Concomitant]
     Route: 065
     Dates: start: 19900101

REACTIONS (29)
  - ANAEMIA [None]
  - AORTIC ATHEROSCLEROSIS [None]
  - AORTIC STENOSIS [None]
  - ARTHROPATHY [None]
  - CARDIAC FAILURE CONGESTIVE [None]
  - COMPRESSION FRACTURE [None]
  - CORONARY ARTERY DISEASE [None]
  - DEPRESSION [None]
  - DRUG INEFFECTIVE [None]
  - DUODENAL ULCER [None]
  - FALL [None]
  - GASTROOESOPHAGEAL REFLUX DISEASE [None]
  - HIATUS HERNIA [None]
  - HYPERGLYCAEMIA [None]
  - INSOMNIA [None]
  - MITRAL VALVE INCOMPETENCE [None]
  - MYOCARDIAL INFARCTION [None]
  - OSTEOARTHRITIS [None]
  - PEPTIC ULCER [None]
  - PERICARDIAL EFFUSION [None]
  - PULMONARY HYPERTENSION [None]
  - SCOLIOSIS [None]
  - SKELETAL INJURY [None]
  - SMALL INTESTINAL OBSTRUCTION [None]
  - TRICUSPID VALVE INCOMPETENCE [None]
  - UPPER GASTROINTESTINAL HAEMORRHAGE [None]
  - URINARY TRACT INFECTION [None]
  - VENTRICULAR EXTRASYSTOLES [None]
  - VENTRICULAR HYPERTROPHY [None]
